FAERS Safety Report 18925398 (Version 1)
Quarter: 2021Q1

REPORT INFORMATION
  Report Type: Report from Study
  Country: US (occurrence: US)
  Receive Date: 20210222
  Receipt Date: 20210222
  Transmission Date: 20210420
  Serious: Yes (Hospitalization)
  Sender: FDA-Public Use
  Company Number: US-TEVA-557010USA

PATIENT
  Age: 67 Year
  Sex: Female
  Weight: 95 kg

DRUGS (25)
  1. EMLA [Concomitant]
     Active Substance: LIDOCAINE\PRILOCAINE
     Indication: CATHETER MANAGEMENT
     Route: 061
     Dates: start: 20141203
  2. AMLODIPINE [Concomitant]
     Active Substance: AMLODIPINE BESYLATE
     Indication: HYPERTENSION
     Dosage: 10 MILLIGRAM DAILY;
     Route: 048
     Dates: start: 2010
  3. LORATADINE. [Concomitant]
     Active Substance: LORATADINE
     Indication: NASAL CONGESTION
     Route: 048
     Dates: start: 20150108
  4. PACLITAXEL. [Suspect]
     Active Substance: PACLITAXEL
     Indication: BREAST CANCER
     Dosage: 3.8095 MG/M2 DAILY; DAY 1 OF 12 WEEKLY CYCLES DURING CHEMOTHERAPY SEGMENT 1
     Route: 042
     Dates: start: 20141203, end: 20150204
  5. DEXAMETHASONE. [Concomitant]
     Active Substance: DEXAMETHASONE
     Indication: PREMEDICATION
     Route: 042
     Dates: start: 20141203
  6. VITAMIN D [Concomitant]
     Active Substance: VITAMIN D NOS
     Indication: VITAMIN SUPPLEMENTATION
     Dosage: 1000 IU (INTERNATIONAL UNIT) DAILY;
     Route: 048
     Dates: start: 20141224
  7. LORATADINE. [Concomitant]
     Active Substance: LORATADINE
     Indication: COUGH
  8. ABT?888 (VELIPARIB) [Suspect]
     Active Substance: VELIPARIB
     Indication: TRIPLE NEGATIVE BREAST CANCER
     Route: 048
     Dates: start: 20141203, end: 20150224
  9. PROCHLORPERAZINE. [Concomitant]
     Active Substance: PROCHLORPERAZINE
     Indication: NAUSEA
     Dosage: AS REQUIRED
     Route: 048
     Dates: start: 20141203
  10. RANITIDINE. [Concomitant]
     Active Substance: RANITIDINE
     Indication: PREMEDICATION
     Route: 042
     Dates: start: 20141203
  11. METFORMIN [Concomitant]
     Active Substance: METFORMIN HYDROCHLORIDE
     Indication: HYPERGLYCAEMIA
     Route: 048
     Dates: start: 20150116
  12. CARBOPLATIN. [Suspect]
     Active Substance: CARBOPLATIN
     Indication: TRIPLE NEGATIVE BREAST CANCER
     Dosage: AUC 6; DAY 1 OF FOUR 21?DAY CYCLES DURING; CHEMOTHERAPY SEGMENT 1
     Route: 042
     Dates: start: 20141203, end: 20150204
  13. TYLENOL [Concomitant]
     Active Substance: ACETAMINOPHEN
     Indication: ABDOMINAL PAIN
     Dosage: AS REQUIRED
     Route: 048
     Dates: start: 201407
  14. VITAMIN B6 [Concomitant]
     Active Substance: PYRIDOXINE HYDROCHLORIDE
     Indication: VITAMIN SUPPLEMENTATION
     Dosage: 200 MILLIGRAM DAILY;
     Route: 048
     Dates: start: 20141224
  15. NEULASTA [Concomitant]
     Active Substance: PEGFILGRASTIM
     Indication: PRODUCT USED FOR UNKNOWN INDICATION
     Route: 065
     Dates: start: 20150227
  16. PALONOSETRON. [Concomitant]
     Active Substance: PALONOSETRON HYDROCHLORIDE
     Indication: PROPHYLAXIS OF NAUSEA AND VOMITING
     Route: 042
     Dates: start: 20141203
  17. DIPHENHYDRAMINE. [Concomitant]
     Active Substance: DIPHENHYDRAMINE
     Indication: PREMEDICATION
     Route: 042
     Dates: start: 20141203
  18. BENICAR HCT [Concomitant]
     Active Substance: HYDROCHLOROTHIAZIDE\OLMESARTAN MEDOXOMIL
     Indication: HYPERTENSION
     Dosage: 40/25MG
     Route: 048
     Dates: start: 2007
  19. METOPROLOL. [Concomitant]
     Active Substance: METOPROLOL
     Indication: HYPERTENSION
     Dosage: 50 MILLIGRAM DAILY;
     Route: 048
     Dates: start: 2010
  20. VITAMIN B12 [Concomitant]
     Active Substance: CYANOCOBALAMIN
     Indication: VITAMIN SUPPLEMENTATION
     Dosage: 4000 MICROGRAM DAILY;
     Route: 048
     Dates: start: 20141224
  21. CYCLOPHOSPHAMIDE. [Suspect]
     Active Substance: CYCLOPHOSPHAMIDE
     Indication: BREAST CANCER
     Dosage: 28.5714 MG/M2 DAILY;
     Route: 042
     Dates: start: 20150226, end: 20150226
  22. EMEND [Concomitant]
     Active Substance: APREPITANT
     Indication: PROPHYLAXIS OF NAUSEA AND VOMITING
     Route: 042
     Dates: start: 20150226, end: 20150226
  23. DOXORUBICIN [Suspect]
     Active Substance: DOXORUBICIN
     Indication: BREAST CANCER
     Dosage: 2.8571 MG/M2 DAILY;
     Route: 042
     Dates: start: 20150226, end: 20150226
  24. GRANISETRON [Concomitant]
     Active Substance: GRANISETRON
     Indication: PREMEDICATION
     Route: 042
     Dates: start: 20141211
  25. SYNTHROID [Concomitant]
     Active Substance: LEVOTHYROXINE SODIUM
     Indication: HYPOTHYROIDISM
     Dosage: 75 MICROGRAM DAILY;
     Route: 048
     Dates: start: 201406

REACTIONS (1)
  - Febrile neutropenia [Recovered/Resolved]

NARRATIVE: CASE EVENT DATE: 20150303
